FAERS Safety Report 4293711-2 (Version None)
Quarter: 2004Q1

REPORT INFORMATION
  Report Type: 
  Country: None (occurrence: None)
  Receive Date: 20040212
  Receipt Date: 19940909
  Transmission Date: 20041129
  Serious: Yes (Hospitalization)
  Sender: FDA-Public Use
  Company Number: US-GLAXOSMITHKLINE-A0031767A

PATIENT
  Age: 42 Year
  Sex: Female
  Weight: 75 kg

DRUGS (7)
  1. ZOVIRAX [Suspect]
     Indication: HERPES ZOSTER
     Dosage: 750MG THREE TIMES PER DAY
     Route: 042
     Dates: start: 19940831, end: 19940906
  2. LITHIUM CARBONATE [Suspect]
     Indication: BIPOLAR DISORDER
     Dosage: 450MG TWICE PER DAY
     Route: 048
     Dates: start: 19860101
  3. VALPROIC ACID [Concomitant]
     Dosage: 750MG PER DAY
     Route: 048
  4. DECADRON [Concomitant]
     Dosage: .5MG PER DAY
     Route: 048
  5. WARFARIN SODIUM [Concomitant]
     Dosage: 2MG ALTERNATE DAYS
     Route: 048
  6. MORPHINE [Concomitant]
     Dosage: 15MG THREE TIMES PER DAY
     Route: 048
  7. DEXTROSE [Concomitant]
     Dosage: 300ML PER DAY

REACTIONS (12)
  - CONFUSIONAL STATE [None]
  - DISORIENTATION [None]
  - DRUG INTERACTION [None]
  - DYSARTHRIA [None]
  - FALL [None]
  - HYPERREFLEXIA [None]
  - INJURY [None]
  - LETHARGY [None]
  - NAUSEA [None]
  - THERAPEUTIC AGENT TOXICITY [None]
  - TREMOR [None]
  - VOMITING [None]
